FAERS Safety Report 20584525 (Version 5)
Quarter: 2022Q2

REPORT INFORMATION
  Report Type: Report from Study
  Country: DE (occurrence: DE)
  Receive Date: 20220311
  Receipt Date: 20220409
  Transmission Date: 20220720
  Serious: No
  Sender: FDA-Public Use
  Company Number: DE-NOVARTISPH-NVSC2022DE052963

PATIENT
  Age: 62 Year
  Sex: Female
  Weight: 42 kg

DRUGS (22)
  1. PLACEBO [Suspect]
     Active Substance: UNSPECIFIED INGREDIENT
     Indication: Secondary progressive multiple sclerosis
     Dosage: 1 UNK
     Route: 065
     Dates: start: 20131119, end: 20160210
  2. SIPONIMOD [Suspect]
     Active Substance: SIPONIMOD
     Indication: Secondary progressive multiple sclerosis
     Dosage: 2 G, QD
     Route: 065
     Dates: start: 201311
  3. RAMIPRIN [Concomitant]
     Indication: Hypertension
     Dosage: 1.25 MG
     Route: 065
     Dates: start: 20210217
  4. MOVICOL [Concomitant]
     Active Substance: POLYETHYLENE GLYCOL 3350\POTASSIUM CHLORIDE\SODIUM BICARBONATE\SODIUM CHLORIDE
     Indication: Constipation
     Dosage: AS NEEDED
     Route: 065
     Dates: start: 20141209
  5. ASPIRIN [Concomitant]
     Active Substance: ASPIRIN
     Indication: Headache
     Dosage: 500 MG, QD
     Route: 048
     Dates: start: 20160406, end: 20160406
  6. ASPIRIN [Concomitant]
     Active Substance: ASPIRIN
     Indication: Nasopharyngitis
     Dosage: 250 MG, PRN
     Route: 048
     Dates: start: 20181006, end: 20181224
  7. NORFLOSAN [Concomitant]
     Indication: Cystitis
     Dosage: 400 MG, BID
     Route: 048
     Dates: start: 20160701, end: 20160707
  8. ACYCLOVIR [Concomitant]
     Active Substance: ACYCLOVIR
     Indication: Herpes zoster
     Dosage: 800 MG, QOD
     Route: 048
     Dates: start: 20161031, end: 20161107
  9. FUSIDIC ACID [Concomitant]
     Active Substance: FUSIDIC ACID
     Indication: Herpes zoster
     Dosage: 20 MG, TID
     Route: 062
     Dates: start: 20161107, end: 20161113
  10. GENTAMICIN [Concomitant]
     Active Substance: GENTAMICIN
     Indication: Herpes zoster
     Dosage: 30 MG, TID
     Route: 062
     Dates: start: 20161107, end: 20161113
  11. FLOXAL [Concomitant]
     Active Substance: OFLOXACIN
     Indication: Hordeolum
     Dosage: 3 MG, PRN
     Route: 057
     Dates: start: 20170523, end: 20170530
  12. ARCTOSTAPHYLOS UVA-URSI LEAF [Concomitant]
     Active Substance: ARCTOSTAPHYLOS UVA-URSI LEAF
     Indication: Urinary tract infection
     Dosage: MG, TID
     Route: 048
     Dates: start: 20180115, end: 20180120
  13. SULFAMETHOXAZOLE\TRIMETHOPRIM [Concomitant]
     Active Substance: SULFAMETHOXAZOLE\TRIMETHOPRIM
     Indication: Urinary tract infection
     Dosage: 960 MG, BID
     Route: 048
     Dates: start: 20180618, end: 20180622
  14. UTIBRON NEOHALER [Concomitant]
     Active Substance: GLYCOPYRROLATE\INDACATEROL MALEATE
     Indication: Product used for unknown indication
     Route: 065
  15. HERBALS [Concomitant]
     Active Substance: HERBALS
     Indication: Nasopharyngitis
     Dosage: 300 MG, PRN
     Route: 048
     Dates: start: 20181006, end: 20181224
  16. ACETAMINOPHEN [Concomitant]
     Active Substance: ACETAMINOPHEN
     Indication: Headache
     Dosage: 500 MG, QD
     Route: 048
     Dates: start: 20191016, end: 20191016
  17. ACETAMINOPHEN [Concomitant]
     Active Substance: ACETAMINOPHEN
     Indication: Urinary tract infection
     Dosage: 500 MG, QD
     Route: 048
     Dates: start: 20210111, end: 20210111
  18. FRESUBIN [Concomitant]
     Active Substance: AMINO ACIDS\DEXTROSE\ELECTROLYTES NOS\SOYBEAN OIL\VITAMINS
     Indication: Cachexia
     Dosage: 125 G, QD
     Route: 048
     Dates: start: 20210126
  19. PANTOPRAZOLE [Concomitant]
     Active Substance: PANTOPRAZOLE
     Indication: Prophylaxis
     Dosage: 20 MG, PRN
     Route: 048
     Dates: start: 200203
  20. IBUPROFEN [Concomitant]
     Active Substance: IBUPROFEN
     Indication: Back pain
     Dosage: 600 MG, PRN
     Route: 065
     Dates: start: 200203
  21. IBUPROFEN [Concomitant]
     Active Substance: IBUPROFEN
     Indication: Headache
     Dosage: 400 MG, PRN
     Route: 048
     Dates: start: 20140516
  22. SOLARAZE [Concomitant]
     Active Substance: DICLOFENAC SODIUM
     Indication: Hyperkeratosis
     Dosage: MG, PRN
     Route: 062
     Dates: start: 201602

REACTIONS (1)
  - Bowen^s disease [Recovered/Resolved]

NARRATIVE: CASE EVENT DATE: 20211206
